FAERS Safety Report 4320220-4 (Version None)
Quarter: 2004Q1

REPORT INFORMATION
  Report Type: 
  Country: None (occurrence: None)
  Receive Date: 20040317
  Receipt Date: 20040305
  Transmission Date: 20041129
  Serious: Yes (Disabling)
  Sender: FDA-Public Use
  Company Number: CH-JNJFOC-20040301610

PATIENT
  Sex: Male
  Weight: 100 kg

DRUGS (6)
  1. RISPERDAL [Suspect]
     Indication: PSYCHOTIC DISORDER
     Dosage: 2 G, IN 1 DAY, ORAL
     Route: 048
  2. AKINETON [Concomitant]
  3. OXAZEPAM [Concomitant]
  4. HALDOL [Concomitant]
  5. AMOXICILINE + CLAVULANIC ACID (AMOXI-CLAVULANICO) [Concomitant]
  6. ASPEGIC (ACETYLSALICYLATE LYSINE) TABLETS [Concomitant]

REACTIONS (4)
  - DEEP VEIN THROMBOSIS [None]
  - FACTOR V LEIDEN MUTATION [None]
  - PROTHROMBIN LEVEL ABNORMAL [None]
  - PYREXIA [None]
